FAERS Safety Report 4789365-9 (Version None)
Quarter: 2005Q3

REPORT INFORMATION
  Report Type: 
  Country: None (occurrence: None)
  Receive Date: 20050929
  Receipt Date: 20050603
  Transmission Date: 20060218
  Serious: No
  Sender: FDA-Public Use
  Company Number: 05P-163-0302169-00

PATIENT
  Age: 70 Year
  Sex: Male
  Weight: 93.441 kg

DRUGS (5)
  1. HUMIRA [Suspect]
     Indication: RHEUMATOID ARTHRITIS
     Dosage: 40 MG, 1 IN 2 WK, SUBCUTANEOUS
     Route: 058
     Dates: start: 20050501
  2. METHOTREXATE [Concomitant]
  3. FOLIC ACID [Concomitant]
  4. NOVOLOG MIX 70/30 [Concomitant]
  5. METOCLOPRAMIDE [Concomitant]

REACTIONS (3)
  - BLISTER [None]
  - INTESTINAL POLYP [None]
  - RASH ERYTHEMATOUS [None]
